FAERS Safety Report 7914209-3 (Version None)
Quarter: 2011Q4

REPORT INFORMATION
  Report Type: 
  Country: None (occurrence: None)
  Receive Date: 20111114
  Receipt Date: 20111114
  Transmission Date: 20120403
  Serious: No
  Sender: FDA-Public Use
  Company Number: None

PATIENT
  Sex: Female

DRUGS (1)
  1. NEUPOGEN [Suspect]
     Indication: CONNECTIVE TISSUE DISORDER
     Dosage: 480MCG/1.6ML IJ SUBCUTANEOUSLY EVERY DAY FOR 7 DAYS EVERY 3 WEEKS
     Dates: start: 20111101

REACTIONS (2)
  - JOINT SWELLING [None]
  - ARTHRALGIA [None]
